FAERS Safety Report 5557443-2 (Version None)
Quarter: 2007Q4

REPORT INFORMATION
  Report Type: 
  Country: None (occurrence: None)
  Receive Date: 20071214
  Receipt Date: 20071204
  Transmission Date: 20080405
  Serious: Yes (Other)
  Sender: FDA-Public Use
  Company Number: BR-JNJFOC-20071201926

PATIENT
  Age: 46 Year
  Sex: Male
  Weight: 82 kg

DRUGS (3)
  1. HALDOL [Suspect]
     Indication: HALLUCINATION
     Route: 048
  2. PROMETHAZINE [Concomitant]
     Indication: SEDATIVE THERAPY
  3. RIVOTRIL [Concomitant]
     Indication: PHOBIA

REACTIONS (5)
  - ERECTILE DYSFUNCTION [None]
  - HOSPITALISATION [None]
  - HYPERTHERMIA [None]
  - MUSCLE RIGIDITY [None]
  - PSYCHOMOTOR HYPERACTIVITY [None]
